FAERS Safety Report 6288344-2 (Version None)
Quarter: 2009Q3

REPORT INFORMATION
  Report Type: 
  Country: None (occurrence: None)
  Receive Date: 20090729
  Receipt Date: 20090724
  Transmission Date: 20100115
  Serious: Yes (Death, Hospitalization, Other)
  Sender: FDA-Public Use
  Company Number: PHHY2009BR30992

PATIENT
  Sex: Male

DRUGS (4)
  1. FORASEQ [Suspect]
     Indication: EMPHYSEMA
     Dosage: 1 DF, BID
     Dates: start: 20070701, end: 20090709
  2. BEROTEC [Concomitant]
     Indication: EMPHYSEMA
  3. DRUG THERAPY NOS [Concomitant]
     Indication: EMPHYSEMA
  4. INFLUENZA VACCINE [Concomitant]
     Dosage: UNK
     Dates: start: 20090501

REACTIONS (5)
  - CHRONIC OBSTRUCTIVE PULMONARY DISEASE [None]
  - COUGH [None]
  - DYSPNOEA [None]
  - FATIGUE [None]
  - INCREASED UPPER AIRWAY SECRETION [None]
